FAERS Safety Report 17542976 (Version 1)
Quarter: 2020Q1

REPORT INFORMATION
  Report Type: Report from Study
  Country: None (occurrence: DE)
  Receive Date: 20200316
  Receipt Date: 20200316
  Transmission Date: 20200409
  Serious: Yes (Hospitalization, Other)
  Sender: FDA-Public Use
  Company Number: DE-ABBVIE-20K-062-3312820-00

PATIENT
  Age: 54 Year
  Sex: Female
  Weight: 63 kg

DRUGS (3)
  1. HUMIRA [Suspect]
     Active Substance: ADALIMUMAB
     Indication: PSORIASIS
     Route: 058
     Dates: start: 20181001, end: 20181112
  2. HUMIRA [Suspect]
     Active Substance: ADALIMUMAB
     Indication: PSORIATIC ARTHROPATHY
  3. HYRIMOZ [Concomitant]
     Active Substance: ADALIMUMAB-ADAZ
     Indication: PRODUCT USED FOR UNKNOWN INDICATION
     Route: 058
     Dates: start: 201811, end: 20181126

REACTIONS (12)
  - Cyst [Recovered/Resolved]
  - Post procedural haemorrhage [Recovered/Resolved]
  - Abdominal abscess [Unknown]
  - Abscess [Recovered/Resolved]
  - Inflammation [Recovered/Resolved]
  - Dermoid cyst [Unknown]
  - Infected dermal cyst [Recovered/Resolved]
  - Fat necrosis [Unknown]
  - Hidradenitis [Recovered/Resolved with Sequelae]
  - Subcutaneous abscess [Unknown]
  - Soft tissue inflammation [Unknown]
  - Excessive granulation tissue [Unknown]

NARRATIVE: CASE EVENT DATE: 20191108
